FAERS Safety Report 14253921 (Version 2)
Quarter: 2017Q4

REPORT INFORMATION
  Report Type: Spontaneous
  Country: CN (occurrence: CN)
  Receive Date: 20171206
  Receipt Date: 20171216
  Transmission Date: 20180321
  Serious: Yes (Life-Threatening)
  Sender: FDA-Public Use
  Company Number: CN-ROCHE-2031207

PATIENT
  Age: 55 Year
  Sex: Male
  Weight: 75 kg

DRUGS (2)
  1. AVASTIN [Suspect]
     Active Substance: BEVACIZUMAB
     Indication: GLIOBLASTOMA MULTIFORME
     Dosage: EVERY TWO WEEKS OR EVERY MONTH
     Route: 041
     Dates: start: 20171001
  2. AVASTIN [Suspect]
     Active Substance: BEVACIZUMAB
     Dosage: FOURTH TREATMENT
     Route: 041
     Dates: start: 20171117

REACTIONS (3)
  - Off label use [Unknown]
  - Tumour haemorrhage [Not Recovered/Not Resolved]
  - Intentional product use issue [Unknown]

NARRATIVE: CASE EVENT DATE: 20171118
